FAERS Safety Report 24658441 (Version 3)
Quarter: 2025Q1

REPORT INFORMATION
  Report Type: Report from Study
  Country: CA (occurrence: CA)
  Receive Date: 20241125
  Receipt Date: 20250124
  Transmission Date: 20250409
  Serious: Yes (Other)
  Sender: TAKEDA
  Company Number: CA-TAKEDA-2022TUS093763

PATIENT
  Sex: Female

DRUGS (12)
  1. VEDOLIZUMAB [Suspect]
     Active Substance: VEDOLIZUMAB
     Indication: Colitis ulcerative
  2. VEDOLIZUMAB [Suspect]
     Active Substance: VEDOLIZUMAB
  3. VEDOLIZUMAB [Suspect]
     Active Substance: VEDOLIZUMAB
  4. VEDOLIZUMAB [Suspect]
     Active Substance: VEDOLIZUMAB
     Indication: Colitis ulcerative
     Dosage: 108 MILLIGRAM, Q2WEEKS
     Dates: start: 20241125
  5. ABILIFY [Concomitant]
     Active Substance: ARIPIPRAZOLE
     Dosage: 300 MILLIGRAM, MONTHLY
  6. DIVALPROEX SODIUM [Concomitant]
     Active Substance: DIVALPROEX SODIUM
     Dosage: 1000 MILLIGRAM, QD
  7. SERTRALINE [Concomitant]
     Active Substance: SERTRALINE HYDROCHLORIDE
     Indication: Depression
  8. CALCIUM\VITAMIN D [Concomitant]
     Active Substance: CALCIUM\VITAMIN D
  9. PREDNISONE [Concomitant]
     Active Substance: PREDNISONE
  10. MESALAMINE [Concomitant]
     Active Substance: MESALAMINE
  11. ZOLOFT [Concomitant]
     Active Substance: SERTRALINE HYDROCHLORIDE
  12. PANTOPRAZOLE [Concomitant]
     Active Substance: PANTOPRAZOLE

REACTIONS (26)
  - Colitis ulcerative [Unknown]
  - Pneumonia [Unknown]
  - Pharyngitis streptococcal [Unknown]
  - Infection [Unknown]
  - Malaise [Not Recovered/Not Resolved]
  - Myalgia [Unknown]
  - Product dose omission issue [Unknown]
  - Pollakiuria [Unknown]
  - Thirst [Unknown]
  - Faeces discoloured [Unknown]
  - Abnormal faeces [Unknown]
  - Mucous stools [Unknown]
  - Discomfort [Not Recovered/Not Resolved]
  - Hyperhidrosis [Unknown]
  - Rhinorrhoea [Unknown]
  - Vomiting [Unknown]
  - Decreased appetite [Unknown]
  - Respiratory tract infection [Unknown]
  - Nasopharyngitis [Unknown]
  - Pruritus [Unknown]
  - Nausea [Unknown]
  - Pyrexia [Recovered/Resolved]
  - Cough [Unknown]
  - Oral herpes [Unknown]
  - Menstruation irregular [Unknown]
  - Dyspareunia [Unknown]
